FAERS Safety Report 18494865 (Version 19)
Quarter: 2023Q2

REPORT INFORMATION
  Report Type: Report from Study
  Country: AR (occurrence: AR)
  Receive Date: 20201112
  Receipt Date: 20230623
  Transmission Date: 20230722
  Serious: Yes (Other)
  Sender: FDA-Public Use
  Company Number: PHHY2018AR075623

PATIENT
  Age: 64 Year
  Sex: Male
  Weight: 88 kg

DRUGS (9)
  1. COSENTYX [Suspect]
     Active Substance: SECUKINUMAB
     Indication: Psoriasis
     Dosage: 300 MG, QMO
     Route: 058
     Dates: start: 20161012
  2. COSENTYX [Suspect]
     Active Substance: SECUKINUMAB
     Indication: Psoriatic arthropathy
     Dosage: 300 MG, QMO
     Route: 058
     Dates: start: 20161012
  3. COSENTYX [Suspect]
     Active Substance: SECUKINUMAB
     Dosage: 150 MG, QMO
     Route: 065
  4. COSENTYX [Suspect]
     Active Substance: SECUKINUMAB
     Dosage: 150 MG, QMO
     Route: 065
  5. COSENTYX [Suspect]
     Active Substance: SECUKINUMAB
     Dosage: UNK
     Route: 058
     Dates: start: 20210209
  6. COSENTYX [Suspect]
     Active Substance: SECUKINUMAB
     Dosage: 300 MG, QMO
     Route: 058
  7. COSENTYX [Suspect]
     Active Substance: SECUKINUMAB
     Dosage: 300 MG, QMO
     Route: 058
  8. COSENTYX [Suspect]
     Active Substance: SECUKINUMAB
     Dosage: 300 MG, QMO
     Route: 058
  9. COSENTYX [Suspect]
     Active Substance: SECUKINUMAB
     Dosage: 300 MG
     Route: 058

REACTIONS (61)
  - Erectile dysfunction [Not Recovered/Not Resolved]
  - Lung disorder [Unknown]
  - Latent tuberculosis [Unknown]
  - Tuberculosis [Unknown]
  - Pleural thickening [Unknown]
  - Productive cough [Unknown]
  - Psoriatic arthropathy [Unknown]
  - Bone pain [Unknown]
  - Head discomfort [Unknown]
  - Thrombosis [Recovered/Resolved]
  - Decreased immune responsiveness [Unknown]
  - Oropharyngeal pain [Recovered/Resolved]
  - Onychalgia [Unknown]
  - Arthralgia [Unknown]
  - Effusion [Unknown]
  - Candida infection [Not Recovered/Not Resolved]
  - Groin pain [Unknown]
  - Swelling [Unknown]
  - Contusion [Not Recovered/Not Resolved]
  - Erythema [Not Recovered/Not Resolved]
  - Hunger [Not Recovered/Not Resolved]
  - Sensitive skin [Not Recovered/Not Resolved]
  - Weight increased [Not Recovered/Not Resolved]
  - Extravasation [Not Recovered/Not Resolved]
  - Limb mass [Unknown]
  - Discharge [Unknown]
  - Dry mouth [Unknown]
  - Catarrh [Unknown]
  - Oropharyngeal pain [Unknown]
  - Insomnia [Unknown]
  - Application site haematoma [Unknown]
  - Application site bruise [Unknown]
  - Pain in extremity [Unknown]
  - Joint stiffness [Unknown]
  - Device leakage [Unknown]
  - Pruritus [Unknown]
  - Finger deformity [Unknown]
  - Spinal disorder [Unknown]
  - Testicular disorder [Unknown]
  - Urticaria [Not Recovered/Not Resolved]
  - Nasopharyngitis [Recovered/Resolved]
  - Nasopharyngitis [Unknown]
  - Headache [Unknown]
  - Depression [Unknown]
  - Arterial occlusive disease [Unknown]
  - Crying [Unknown]
  - Malaise [Unknown]
  - Weight decreased [Unknown]
  - Thermal burn [Unknown]
  - Dry skin [Unknown]
  - Influenza [Unknown]
  - Pyrexia [Unknown]
  - Agitation [Unknown]
  - Gait disturbance [Unknown]
  - Condition aggravated [Unknown]
  - Limb injury [Unknown]
  - Psoriasis [Not Recovered/Not Resolved]
  - Skin exfoliation [Unknown]
  - Pigmentation disorder [Unknown]
  - Fall [Unknown]
  - Fungal infection [Unknown]

NARRATIVE: CASE EVENT DATE: 20161012
